FAERS Safety Report 13279497 (Version 1)
Quarter: 2017Q1

REPORT INFORMATION
  Report Type: Spontaneous
  Country: CA (occurrence: CA)
  Receive Date: 20170228
  Receipt Date: 20170228
  Transmission Date: 20170428
  Serious: Yes (Other)
  Sender: FDA-Public Use
  Company Number: CA-TEVA-745106ACC

PATIENT
  Sex: Male
  Weight: 79 kg

DRUGS (1)
  1. ROSUVASTATIN. [Suspect]
     Active Substance: ROSUVASTATIN
     Indication: ARTERIOSCLEROSIS
     Dosage: 5 MILLIGRAM DAILY;
     Route: 048

REACTIONS (1)
  - Visual acuity reduced [Recovered/Resolved]
